FAERS Safety Report 6337961-X (Version None)
Quarter: 2009Q3

REPORT INFORMATION
  Report Type: 
  Country: None (occurrence: None)
  Receive Date: 20090902
  Receipt Date: 20090827
  Transmission Date: 20100115
  Serious: Yes (Death)
  Sender: FDA-Public Use
  Company Number: ZA-AVENTIS-200918543GDDC

PATIENT
  Age: 37 Year
  Sex: Male
  Weight: 67 kg

DRUGS (2)
  1. ISONIAZID [Suspect]
     Route: 048
     Dates: start: 20080508, end: 20081130
  2. PYRIDOXINE [Suspect]
     Route: 048
     Dates: start: 20080508, end: 20081130

REACTIONS (1)
  - DEATH [None]
